FAERS Safety Report 8995535 (Version 1)
Quarter: 2013Q1

REPORT INFORMATION
  Report Type: Spontaneous
  Country: US (occurrence: US)
  Receive Date: 20130103
  Receipt Date: 20130103
  Transmission Date: 20140127
  Serious: No
  Sender: FDA-Public Use
  Company Number: US-ABBOTT-12P-163-0949746-00

PATIENT
  Sex: 0

DRUGS (29)
  1. SYNTHROID [Suspect]
     Indication: HORMONE REPLACEMENT THERAPY
     Dosage: AM
  2. LOVAZA [Suspect]
     Indication: BLOOD CHOLESTEROL INCREASED
  3. ZETIA [Suspect]
     Indication: LIPIDS INCREASED
     Dosage: 5 PM
  4. TRILIPIX [Suspect]
     Indication: HYPERCHOLESTEROLAEMIA
     Dosage: AM
  5. OMEPRAZOLE [Suspect]
     Indication: GASTRIC PH DECREASED
     Dosage: 7 AM
  6. SIMVASTATIN [Concomitant]
     Indication: BLOOD CHOLESTEROL INCREASED
     Dosage: 5 PM
  7. EFFEXOR [Concomitant]
     Indication: DEPRESSION
     Dosage: AM + PM
     Route: 048
  8. LANUDEL [Concomitant]
     Indication: AFFECTIVE DISORDER
     Dosage: AM + HS
  9. CYMBALTA [Concomitant]
     Indication: DEPRESSION
     Dosage: AM + HS
  10. GEODON [Concomitant]
     Indication: THINKING ABNORMAL
     Dosage: HS
  11. GEODON [Concomitant]
  12. GEODON [Concomitant]
     Route: 048
  13. KLONOPIN [Concomitant]
     Indication: ANXIETY
     Dosage: HS
  14. METFORMIN [Concomitant]
     Indication: BLOOD GLUCOSE INCREASED
     Dosage: AM
  15. COUMADIN [Concomitant]
     Indication: COAGULOPATHY
     Dosage: HS
  16. VESCICAL [Concomitant]
     Indication: URINARY INCONTINENCE
     Dosage: HS
  17. FLUDICOTT [Concomitant]
     Indication: BLOOD PRESSURE INCREASED
     Dosage: AM + HS
  18. FLUDICOTT [Concomitant]
     Indication: DIZZINESS
  19. INDERAL [Concomitant]
     Indication: HYPERTENSION
  20. ALEGRA [Concomitant]
     Indication: HYPERSENSITIVITY
     Dosage: AM
  21. ZOFRAN [Concomitant]
     Indication: NAUSEA
     Dosage: Q8H PRN
  22. COLACE + PERIOLACE [Concomitant]
     Indication: CONSTIPATION
     Dosage: 2 EACH 2 X DAY
  23. ASA [Concomitant]
     Indication: ANTICOAGULANT THERAPY
     Dosage: AM
  24. SUPER B [Concomitant]
     Indication: PRODUCT USED FOR UNKNOWN INDICATION
  25. COMPLETE SINUS [Concomitant]
     Indication: PRODUCT USED FOR UNKNOWN INDICATION
  26. VIT C [Concomitant]
     Indication: PRODUCT USED FOR UNKNOWN INDICATION
  27. B12 [Concomitant]
     Indication: PRODUCT USED FOR UNKNOWN INDICATION
  28. VITAMIN D [Concomitant]
     Indication: PRODUCT USED FOR UNKNOWN INDICATION
  29. CALCIUM [Concomitant]
     Indication: PRODUCT USED FOR UNKNOWN INDICATION
     Dosage: 1000 MG DAILY

REACTIONS (2)
  - Insomnia [Unknown]
  - Drug hypersensitivity [Unknown]
